FAERS Safety Report 5330844-3 (Version None)
Quarter: 2007Q2

REPORT INFORMATION
  Report Type: 
  Country: None (occurrence: None)
  Receive Date: 20070522
  Receipt Date: 20070509
  Transmission Date: 20071010
  Serious: Yes (Other)
  Sender: FDA-Public Use
  Company Number: JP-ELI_LILLY_AND_COMPANY-JP200705003649

PATIENT
  Age: 55 Year
  Sex: Female

DRUGS (4)
  1. GEMZAR [Suspect]
     Indication: SMALL INTESTINE LEIOMYOSARCOMA
     Dosage: 675 MG/M2, OTHER
     Route: 042
  2. GEMZAR [Suspect]
     Dosage: 450 MG/M2, OTHER
     Route: 042
  3. TAXOTERE [Concomitant]
     Indication: SMALL INTESTINE LEIOMYOSARCOMA
     Dosage: 75 MG/M2, OTHER
     Route: 042
  4. TAXOTERE [Concomitant]
     Dosage: 40 MG/M2, OTHER
     Route: 042

REACTIONS (4)
  - COMPUTERISED TOMOGRAM ABNORMAL [None]
  - GRANULOCYTE COUNT DECREASED [None]
  - PLATELET COUNT DECREASED [None]
  - TUMOUR HAEMORRHAGE [None]
